FAERS Safety Report 8787805 (Version 1)
Quarter: 2012Q4

REPORT INFORMATION
  Report Type: 
  Country: US (occurrence: US)
  Receive Date: 20120914
  Receipt Date: 20120914
  Transmission Date: 20130627
  Serious: No
  Sender: FDA-Public Use
  Company Number: US-VERTEX PHARMACEUTICAL INC.-AE-2012-006198

PATIENT
  Age: 63 Year
  Sex: Female
  Weight: 75 kg

DRUGS (7)
  1. INCIVEK [Suspect]
     Indication: HEPATITIS C
     Route: 048
     Dates: start: 20120427, end: 20120716
  2. INCIVEK [Suspect]
     Indication: HEPATITIS
  3. PEGASYS [Concomitant]
     Indication: HEPATITIS C
     Route: 058
     Dates: start: 20120427
  4. RIBAVIRIN [Concomitant]
     Indication: HEPATITIS C
     Route: 048
     Dates: start: 20120427
  5. DIOVAN [Concomitant]
     Route: 048
  6. ACETAZOLAMIDE [Concomitant]
     Route: 048
  7. LEVEMIR INSULIN [Concomitant]
     Indication: DIABETES MELLITUS
     Route: 058

REACTIONS (10)
  - Blood glucose increased [Not Recovered/Not Resolved]
  - Chromaturia [Not Recovered/Not Resolved]
  - Decreased appetite [Not Recovered/Not Resolved]
  - Weight decreased [Not Recovered/Not Resolved]
  - Dry skin [Not Recovered/Not Resolved]
  - Fatigue [Not Recovered/Not Resolved]
  - Nausea [Recovered/Resolved]
  - Vomiting [Recovered/Resolved]
  - Anorectal disorder [Recovered/Resolved]
  - Anaemia [Not Recovered/Not Resolved]
